FAERS Safety Report 9687676 (Version 4)
Quarter: 2014Q1

REPORT INFORMATION
  Report Type: Spontaneous
  Country: US (occurrence: US)
  Receive Date: 20131114
  Receipt Date: 20140327
  Transmission Date: 20141002
  Serious: No
  Sender: FDA-Public Use
  Company Number: US-PFIZER INC-2013320576

PATIENT
  Age: 75 Year
  Sex: Female

DRUGS (74)
  1. INLYTA [Suspect]
     Indication: RENAL CANCER
     Dosage: 5 MG, 2X/DAY
     Route: 048
     Dates: start: 20131024
  2. ALENDRONATE SODIUM [Concomitant]
     Dosage: 70 MG, WEEKLY
     Dates: start: 20130129
  3. ALENDRONATE SODIUM [Concomitant]
     Dosage: UNK
     Dates: start: 20130325
  4. ALENDRONATE SODIUM [Concomitant]
     Dosage: UNK
     Dates: start: 20130422
  5. ALENDRONATE SODIUM [Concomitant]
     Dosage: UNK
     Dates: start: 20130516
  6. ALENDRONATE SODIUM [Concomitant]
     Dosage: UNK
     Dates: start: 20130528
  7. ALENDRONATE SODIUM [Concomitant]
     Dosage: UNK
     Dates: start: 20130626
  8. LABETALOL HYDROCHLORIDE [Concomitant]
     Dosage: 300 MG, 2X/DAY
     Dates: start: 20130129
  9. LABETALOL HYDROCHLORIDE [Concomitant]
     Dosage: UNK
     Dates: start: 20130325
  10. LABETALOL HYDROCHLORIDE [Concomitant]
     Dosage: UNK
     Dates: start: 20130422
  11. LABETALOL HYDROCHLORIDE [Concomitant]
     Dosage: UNK
     Dates: start: 20130516
  12. LABETALOL HYDROCHLORIDE [Concomitant]
     Dosage: UNK
     Dates: start: 20130528
  13. LABETALOL HYDROCHLORIDE [Concomitant]
     Dosage: UNK
     Dates: start: 20130626
  14. LABETALOL HYDROCHLORIDE [Concomitant]
     Dosage: UNK
     Dates: start: 20130912
  15. LABETALOL HYDROCHLORIDE [Concomitant]
     Dosage: 100 MG, 2X/DAY
     Dates: start: 20131002
  16. LABETALOL HYDROCHLORIDE [Concomitant]
     Dosage: UNK
     Dates: start: 20131020
  17. ZOLOFT [Concomitant]
     Dosage: 50 MG, DAILY
     Dates: start: 20130129
  18. ZOLOFT [Concomitant]
     Dosage: UNK
     Dates: start: 20130325
  19. ZOLOFT [Concomitant]
     Dosage: UNK
     Dates: start: 20130422
  20. ZOLOFT [Concomitant]
     Dosage: UNK
     Dates: start: 20130516
  21. ZOLOFT [Concomitant]
     Dosage: UNK
     Dates: start: 20130528
  22. ZOLOFT [Concomitant]
     Dosage: UNK
     Dates: start: 20130626
  23. ZOLOFT [Concomitant]
     Dosage: UNK
     Dates: start: 20130807
  24. ZOLOFT [Concomitant]
     Dosage: UNK
     Dates: start: 20130912
  25. ZOLOFT [Concomitant]
     Dosage: UNK
     Dates: start: 20131002
  26. ZOLOFT [Concomitant]
     Dosage: UNK
     Dates: start: 20131020
  27. ASPIRIN [Concomitant]
     Dosage: 81 MG, DAILY
     Dates: start: 20130129
  28. ASPIRIN [Concomitant]
     Dosage: UNK
     Dates: start: 20130325
  29. ASPIRIN [Concomitant]
     Dosage: UNK
     Dates: start: 20130912
  30. LOPRESSOR [Concomitant]
     Dosage: 50 MG, 2X/DAY
     Dates: start: 20130129
  31. LOPRESSOR [Concomitant]
     Dosage: UNK
     Dates: start: 20130325
  32. PHENERGAN [Concomitant]
     Dosage: 25 MG, UNK
     Dates: start: 20130422
  33. PHENERGAN [Concomitant]
     Dosage: UNK
     Dates: start: 20130516
  34. PHENERGAN [Concomitant]
     Dosage: UNK
     Dates: start: 20130528
  35. PHENERGAN [Concomitant]
     Dosage: UNK
     Dates: start: 20130528
  36. PHENERGAN [Concomitant]
     Dosage: UNK
     Dates: start: 20130626
  37. PHENERGAN [Concomitant]
     Dosage: UNK
     Dates: start: 20130807
  38. PHENERGAN [Concomitant]
     Dosage: UNK
     Dates: start: 20130912
  39. PHENERGAN [Concomitant]
     Dosage: UNK
     Dates: start: 20131002
  40. PHENERGAN [Concomitant]
     Dosage: UNK
     Dates: start: 20131020
  41. CELEBREX [Concomitant]
     Dosage: 200 MG, UNK
     Dates: end: 20130129
  42. PLAVIX [Concomitant]
     Dosage: 75 MG, UNK
     Dates: start: 20130129
  43. PLAVIX [Concomitant]
     Dosage: UNK
     Dates: start: 20130325
  44. PLAVIX [Concomitant]
     Dosage: UNK
     Dates: start: 20130422
  45. PLAVIX [Concomitant]
     Dosage: UNK
     Dates: start: 20130516
  46. PLAVIX [Concomitant]
     Dosage: UNK
     Dates: start: 20130528
  47. PLAVIX [Concomitant]
     Dosage: UNK
     Dates: start: 20130626
  48. PLAVIX [Concomitant]
     Dosage: UNK
     Dates: start: 20130807
  49. PLAVIX [Concomitant]
     Dosage: UNK
     Dates: start: 20130912
  50. PLAVIX [Concomitant]
     Dosage: UNK
     Dates: start: 20131002
  51. PLAVIX [Concomitant]
     Dosage: UNK
     Dates: start: 20131020
  52. CLOPIDOGREL BISULFATE [Concomitant]
     Dosage: 75 MG, DAILY
     Dates: start: 20130129
  53. CLOPIDOGREL BISULFATE [Concomitant]
     Dosage: UNK
     Dates: start: 20130325
  54. CLOPIDOGREL BISULFATE [Concomitant]
     Dosage: UNK
     Dates: start: 20130422
  55. SERTRALINE HYDROCHLORIDE [Concomitant]
     Dosage: 50 MG, DAILY
     Dates: start: 20130129
  56. SERTRALINE HYDROCHLORIDE [Concomitant]
     Dosage: UNK
     Dates: start: 20130325
  57. FOSAMAX [Concomitant]
     Dosage: UNK, WEEKLY
     Dates: start: 20130129
  58. FOSAMAX [Concomitant]
     Dosage: UNK
     Dates: start: 20130325
  59. ZOFRAN [Concomitant]
     Dosage: 8 MG, UNK
     Dates: start: 20130422
  60. ZOFRAN [Concomitant]
     Dosage: UNK
     Dates: start: 20130516
  61. ZOFRAN [Concomitant]
     Dosage: UNK
     Dates: start: 20130528
  62. ZOFRAN [Concomitant]
     Dosage: UNK
     Dates: start: 20130626
  63. ZOFRAN [Concomitant]
     Dosage: UNK
     Dates: start: 20130807
  64. ZOFRAN [Concomitant]
     Dosage: UNK
     Dates: start: 20130912
  65. ZOFRAN [Concomitant]
     Dosage: UNK
     Dates: start: 20131002
  66. ZOFRAN [Concomitant]
     Dosage: UNK
     Dates: start: 20131020
  67. XANAX [Concomitant]
     Dosage: 0.25 MG, 3X/DAY
     Dates: start: 20131002
  68. XANAX [Concomitant]
     Dosage: UNK
     Dates: start: 20131020
  69. RANITIDINE [Concomitant]
     Dosage: 300 MG, DAILY
     Dates: start: 20131002
  70. RANITIDINE [Concomitant]
     Dosage: UNK
     Dates: start: 20131020
  71. SUTENT [Concomitant]
     Dosage: 50 MG, UNK
     Dates: start: 20130422
  72. SUTENT [Concomitant]
     Dosage: UNK
     Dates: start: 20130516
  73. SUTENT [Concomitant]
     Dosage: UNK
     Dates: start: 20130528
  74. SUTENT [Concomitant]
     Dosage: UNK
     Dates: start: 20130626

REACTIONS (4)
  - Asthenia [Unknown]
  - Confusional state [Unknown]
  - Gait disturbance [Unknown]
  - Amnesia [Unknown]
